FAERS Safety Report 4901527-6 (Version None)
Quarter: 2006Q1

REPORT INFORMATION
  Report Type: 
  Country: None (occurrence: None)
  Receive Date: 20060206
  Receipt Date: 20041216
  Transmission Date: 20060701
  Serious: Yes (Hospitalization)
  Sender: FDA-Public Use
  Company Number: US-BRISTOL-MYERS SQUIBB COMPANY-12797577

PATIENT
  Age: 55 Year
  Sex: Female
  Weight: 140 kg

DRUGS (5)
  1. TAXOL [Suspect]
     Indication: BREAST CANCER
     Route: 042
     Dates: start: 20041103, end: 20041103
  2. DECADRON PHOSPHATE [Concomitant]
     Indication: PREMEDICATION
     Route: 042
  3. ZANTAC [Concomitant]
     Indication: PREMEDICATION
     Route: 042
  4. BENADRYL [Concomitant]
     Indication: PREMEDICATION
     Route: 042
  5. ANZEMET [Concomitant]
     Indication: PREMEDICATION
     Route: 042

REACTIONS (2)
  - ADVERSE DRUG REACTION [None]
  - DYSPNOEA [None]
